FAERS Safety Report 7620840-5 (Version None)
Quarter: 2011Q3

REPORT INFORMATION
  Report Type: 
  Country: None (occurrence: None)
  Receive Date: 20110719
  Receipt Date: 20110708
  Transmission Date: 20111222
  Serious: No
  Sender: FDA-Public Use
  Company Number: US-PFIZER INC-2011154417

PATIENT
  Age: 21 Year
  Sex: Female

DRUGS (2)
  1. CLEOCIN HYDROCHLORIDE [Suspect]
     Indication: HAIR DISORDER
     Dosage: UNK
     Dates: start: 20110622
  2. CETAPHIL [Suspect]
     Indication: HAIR DISORDER
     Dosage: UNK
     Dates: start: 20110622

REACTIONS (2)
  - DISCOMFORT [None]
  - THROAT IRRITATION [None]
